FAERS Safety Report 6682564-0 (Version None)
Quarter: 2010Q2

REPORT INFORMATION
  Report Type: 
  Country: None (occurrence: None)
  Receive Date: 20100415
  Receipt Date: 20080310
  Transmission Date: 20101027
  Serious: Yes (Other)
  Sender: FDA-Public Use
  Company Number: US-SANOFI-AVENTIS-F01200701136

PATIENT
  Age: 58 Year
  Sex: Female
  Weight: 64.5 kg

DRUGS (14)
  1. OXALIPLATIN [Suspect]
     Dosage: UNIT DOSE: 85 MG/M2
     Route: 041
     Dates: start: 20070905, end: 20070905
  2. OXALIPLATIN [Suspect]
     Dosage: UNIT DOSE: 85 MG/M2
     Route: 041
     Dates: start: 20070815, end: 20070815
  3. DOCETAXEL [Suspect]
     Dosage: UNIT DOSE: 75 MG/M2
     Route: 041
     Dates: start: 20070905, end: 20070905
  4. DOCETAXEL [Suspect]
     Dosage: UNIT DOSE: 75 MG/M2
     Route: 041
     Dates: start: 20070815, end: 20070815
  5. BEVACIZUMAB [Suspect]
     Dosage: UNIT DOSE: 15 MG/KG
     Route: 041
     Dates: start: 20070905, end: 20070905
  6. BEVACIZUMAB [Suspect]
     Dosage: UNIT DOSE: 15 MG/KG
     Route: 041
     Dates: start: 20070815, end: 20070815
  7. ATENOLOL [Concomitant]
     Indication: HYPERTENSION
     Dates: start: 20020101, end: 20070910
  8. LEVOTHYROXINE SODIUM [Concomitant]
     Indication: HYPOTHYROIDISM
     Dates: start: 19820101
  9. WELLBUTRIN [Concomitant]
     Indication: ANXIETY
     Dates: start: 20020101
  10. EVISTA [Concomitant]
     Indication: OSTEOPOROSIS
     Dates: start: 20070101
  11. ETODOLAC [Concomitant]
     Dates: start: 20030101, end: 20070101
  12. SPIRONOLACTONE [Concomitant]
     Dates: start: 20070906, end: 20070913
  13. ZOFRAN [Concomitant]
     Indication: NAUSEA
     Dates: start: 20070911
  14. COMPAZINE [Concomitant]
     Indication: NAUSEA
     Dates: start: 20070911

REACTIONS (1)
  - SUPRAVENTRICULAR TACHYCARDIA [None]
